FAERS Safety Report 25098758 (Version 1)
Quarter: 2025Q1

REPORT INFORMATION
  Report Type: Spontaneous
  Country: AT (occurrence: AT)
  Receive Date: 20250320
  Receipt Date: 20250320
  Transmission Date: 20250409
  Serious: No
  Sender: ALKEM
  Company Number: AT-ALKEM LABORATORIES LIMITED-AT-ALKEM-2024-06245

PATIENT

DRUGS (2)
  1. TIZANIDINE [Suspect]
     Active Substance: TIZANIDINE
     Indication: Stress cardiomyopathy
     Dosage: 60 MILLIGRAM, QD
     Route: 065
  2. TIZANIDINE [Suspect]
     Active Substance: TIZANIDINE
     Route: 065

REACTIONS (5)
  - Confusional state [Unknown]
  - Withdrawal syndrome [Unknown]
  - Tremor [Unknown]
  - Hypertension [Unknown]
  - Tachycardia [Unknown]
